FAERS Safety Report 4577757-2 (Version None)
Quarter: 2005Q1

REPORT INFORMATION
  Report Type: 
  Country: None (occurrence: None)
  Receive Date: 20050209
  Receipt Date: 20050126
  Transmission Date: 20050727
  Serious: Yes (Death, Hospitalization)
  Sender: FDA-Public Use
  Company Number: 2004AL000732

PATIENT
  Age: 66 Year
  Sex: Female

DRUGS (3)
  1. KADIAN [Suspect]
     Dosage: PO
     Route: 048
  2. DIAZEPAM [Suspect]
     Dosage: PO
     Route: 046
  3. PROMETH SYRUP PLAIN (PROPMETHAZINE HCL SYRUP USP, 6.25 MG/5ML) (ALPHAR [Suspect]
     Dosage: PO
     Route: 048

REACTIONS (11)
  - ACUTE RESPIRATORY DISTRESS SYNDROME [None]
  - AGITATION [None]
  - ASPIRATION [None]
  - BODY TEMPERATURE INCREASED [None]
  - CARDIAC ARREST [None]
  - COMPLETED SUICIDE [None]
  - DRUG SCREEN POSITIVE [None]
  - HYPOTENSION [None]
  - LETHARGY [None]
  - MIOSIS [None]
  - MULTIPLE DRUG OVERDOSE [None]
